FAERS Safety Report 13050559 (Version 1)
Quarter: 2016Q4

REPORT INFORMATION
  Report Type: Report from Study
  Country: IT (occurrence: IT)
  Receive Date: 20161221
  Receipt Date: 20161221
  Transmission Date: 20170207
  Serious: Yes (Hospitalization)
  Sender: FDA-Public Use
  Company Number: IT-TEVA-720940ACC

PATIENT
  Age: 73 Year
  Sex: Male

DRUGS (2)
  1. LORMETAZEPAM [Interacting]
     Active Substance: LORMETAZEPAM
  2. DIAZEPAM. [Suspect]
     Active Substance: DIAZEPAM

REACTIONS (3)
  - Labelled drug-drug interaction medication error [Unknown]
  - Wrong technique in product usage process [Unknown]
  - Somnolence [Unknown]
